FAERS Safety Report 8454893-1 (Version None)
Quarter: 2012Q2

REPORT INFORMATION
  Report Type: 
  Country: None (occurrence: None)
  Receive Date: 20120615
  Receipt Date: 20120615
  Transmission Date: 20120825
  Serious: Yes (Other)
  Sender: FDA-Public Use
  Company Number: None

PATIENT
  Age: 69 Year
  Sex: Female
  Weight: 62.1428 kg

DRUGS (3)
  1. COMBIGAN OPTHALMIC DROPS [Concomitant]
  2. NEVANAC [Suspect]
     Indication: INFLAMMATION
     Dosage: ONE DROP 4X DAILY BILAT. EYES
     Route: 047
     Dates: start: 20120525
  3. NEVANAC [Suspect]
     Indication: INFLAMMATION
     Dosage: ONE DROP 4X DAILY BILAT. EYES
     Route: 047
     Dates: start: 20120524

REACTIONS (5)
  - VISUAL IMPAIRMENT [None]
  - LACRIMATION INCREASED [None]
  - EYE PAIN [None]
  - RHINORRHOEA [None]
  - VISUAL ACUITY REDUCED [None]
